FAERS Safety Report 25211915 (Version 2)
Quarter: 2025Q3

REPORT INFORMATION
  Report Type: Spontaneous
  Country: US (occurrence: US)
  Receive Date: 20250418
  Receipt Date: 20250716
  Transmission Date: 20251020
  Serious: Yes (Hospitalization, Other)
  Sender: BRISTOL-MYERS SQUIBB COMPANY
  Company Number: US-BRISTOL-MYERS SQUIBB COMPANY-2025-056051

PATIENT
  Age: 85 Year
  Sex: Male

DRUGS (2)
  1. NIVOLUMAB [Suspect]
     Active Substance: NIVOLUMAB
     Indication: Papillary renal cell carcinoma
     Dates: start: 20231130, end: 20231230
  2. CABOZANTINIB [Suspect]
     Active Substance: CABOZANTINIB
     Indication: Papillary renal cell carcinoma
     Dates: start: 20231130, end: 20231230

REACTIONS (4)
  - Immune-mediated myasthenia gravis [Recovering/Resolving]
  - Myositis [Unknown]
  - Immune-mediated hepatic disorder [Unknown]
  - Liver function test increased [Recovered/Resolved]

NARRATIVE: CASE EVENT DATE: 20231230
